FAERS Safety Report 6572829-5 (Version None)
Quarter: 2010Q1

REPORT INFORMATION
  Report Type: 
  Country: None (occurrence: None)
  Receive Date: 20100205
  Receipt Date: 20100202
  Transmission Date: 20100710
  Serious: Yes (Other)
  Sender: FDA-Public Use
  Company Number: US-GENENTECH-292965

PATIENT
  Sex: Female

DRUGS (15)
  1. XOLAIR [Suspect]
     Indication: ASTHMA
     Dosage: UNK
     Dates: start: 20091014
  2. STEROIDS (UNK INGREDIENTS) [Suspect]
     Indication: DRUG USE FOR UNKNOWN INDICATION
  3. MULTI-VITAMINS [Concomitant]
     Indication: DRUG USE FOR UNKNOWN INDICATION
  4. LISINOPRIL [Concomitant]
     Indication: DRUG USE FOR UNKNOWN INDICATION
     Dosage: UNK
  5. ZANTAC [Concomitant]
     Indication: DRUG USE FOR UNKNOWN INDICATION
  6. NASAL SPRAY (ANTIBIOTIC) (UNK INGREDIENTS) [Concomitant]
     Indication: DRUG USE FOR UNKNOWN INDICATION
  7. VENTOLIN DS [Concomitant]
     Indication: DRUG USE FOR UNKNOWN INDICATION
  8. CLARITIN [Concomitant]
     Indication: ASTHMA
     Dosage: UNK
     Route: 048
  9. ADVAIR DISKUS 100/50 [Concomitant]
     Indication: ASTHMA
     Dosage: UNK
     Route: 048
  10. SINGULAIR [Concomitant]
     Indication: ASTHMA
     Dosage: UNK
     Route: 048
  11. FLONASE [Concomitant]
     Indication: ASTHMA
     Dosage: UNK
     Route: 045
  12. XOPENEX [Concomitant]
     Indication: ASTHMA
     Dosage: UNK
     Route: 048
  13. PREDNISONE [Concomitant]
     Indication: ASTHMA
     Dosage: UNK
     Route: 048
  14. DUONEB [Concomitant]
     Indication: ASTHMA
     Dosage: UNK
  15. DILTIAZEM HCL [Concomitant]
     Indication: DRUG USE FOR UNKNOWN INDICATION
     Dosage: UNK

REACTIONS (2)
  - DYSPHONIA [None]
  - FLUSHING [None]
